FAERS Safety Report 14403417 (Version 3)
Quarter: 2018Q1

REPORT INFORMATION
  Report Type: Spontaneous
  Country: GB (occurrence: GB)
  Receive Date: 20180117
  Receipt Date: 20180315
  Transmission Date: 20180509
  Serious: Yes (Death, Hospitalization)
  Sender: FDA-Public Use
  Company Number: GB-PFIZER INC-2018010517

PATIENT
  Age: 74 Year
  Sex: Male
  Weight: 61 kg

DRUGS (2)
  1. OMEPRAZOLE. [Concomitant]
     Active Substance: OMEPRAZOLE
     Indication: PRODUCT USED FOR UNKNOWN INDICATION
     Dosage: 10 MG, UNK
     Route: 048
     Dates: start: 20141021, end: 20171005
  2. METHOTREXATE SODIUM. [Suspect]
     Active Substance: METHOTREXATE SODIUM
     Indication: RHEUMATOID ARTHRITIS
     Dosage: 20 MG, UNK
     Route: 048
     Dates: start: 20170113, end: 20171207

REACTIONS (12)
  - Cough [Unknown]
  - Sepsis [Unknown]
  - Loss of consciousness [Unknown]
  - Urinary tract infection [Unknown]
  - Pneumothorax [Unknown]
  - Lung disorder [Unknown]
  - Infection [Unknown]
  - Dyspnoea [Unknown]
  - Malaise [Unknown]
  - Dry throat [Unknown]
  - Oropharyngeal pain [Unknown]
  - Pneumonitis [Fatal]

NARRATIVE: CASE EVENT DATE: 201711
